FAERS Safety Report 16199158 (Version 1)
Quarter: 2019Q2

REPORT INFORMATION
  Report Type: Report from Study
  Country: RU (occurrence: RU)
  Receive Date: 20190415
  Receipt Date: 20190415
  Transmission Date: 20190711
  Serious: Yes (Death)
  Sender: FDA-Public Use
  Company Number: RU-ASTRAZENECA-2019SE55798

PATIENT
  Age: 65 Year
  Sex: Male

DRUGS (6)
  1. VEROSPIRON [Concomitant]
     Active Substance: SPIRONOLACTONE
  2. TORASEMIDE [Concomitant]
     Active Substance: TORSEMIDE
  3. CAPOTEN [Concomitant]
     Active Substance: CAPTOPRIL
  4. BRILINTA [Suspect]
     Active Substance: TICAGRELOR
     Route: 048
     Dates: start: 20180820, end: 20190410
  5. CARDIOMAGNYL [Concomitant]
     Active Substance: ASPIRIN\MAGNESIUM HYDROXIDE
  6. FUROSEMIDE. [Concomitant]
     Active Substance: FUROSEMIDE

REACTIONS (1)
  - Death [Fatal]

NARRATIVE: CASE EVENT DATE: 20190410
